FAERS Safety Report 6976608-6 (Version None)
Quarter: 2010Q3

REPORT INFORMATION
  Report Type: 
  Country: None (occurrence: None)
  Receive Date: 20100910
  Receipt Date: 20100831
  Transmission Date: 20110219
  Serious: Yes (Other)
  Sender: FDA-Public Use
  Company Number: US-PFIZER INC-2010097830

PATIENT
  Sex: Male
  Weight: 95 kg

DRUGS (2)
  1. XANAX [Suspect]
     Indication: DEPRESSION
     Dosage: UNK
     Dates: start: 20100101
  2. XANAX [Suspect]
     Indication: ANXIETY

REACTIONS (7)
  - ABNORMAL BEHAVIOUR [None]
  - ANXIETY [None]
  - COGNITIVE DISORDER [None]
  - DEPRESSION [None]
  - MANIA [None]
  - NEGATIVE THOUGHTS [None]
  - SUICIDAL IDEATION [None]
